FAERS Safety Report 24990427 (Version 1)
Quarter: 2025Q1

REPORT INFORMATION
  Report Type: Spontaneous
  Country: US (occurrence: None)
  Receive Date: 20250219
  Receipt Date: 20250219
  Transmission Date: 20250409
  Serious: Yes (Other)
  Sender: FDA-CTU
  Company Number: None

PATIENT
  Age: 58 Year
  Sex: Female

DRUGS (1)
  1. XELSTRYM [Suspect]
     Active Substance: DEXTROAMPHETAMINE
     Indication: Attention deficit hyperactivity disorder
     Dosage: FREQUENCY : DAILY;?
     Route: 062
     Dates: start: 20241107, end: 20241122

REACTIONS (4)
  - Application site pain [None]
  - Application site erythema [None]
  - Application site swelling [None]
  - Application site pruritus [None]

NARRATIVE: CASE EVENT DATE: 20241122
